FAERS Safety Report 6278590-6 (Version None)
Quarter: 2009Q3

REPORT INFORMATION
  Report Type: 
  Country: None (occurrence: None)
  Receive Date: 20090722
  Receipt Date: 20090107
  Transmission Date: 20100115
  Serious: No
  Sender: FDA-Public Use
  Company Number: US-BAUSCH-2009BL000041

PATIENT
  Age: 54 Year
  Sex: Male
  Weight: 117 kg

DRUGS (2)
  1. OPCON-A [Suspect]
     Indication: OCULAR HYPERAEMIA
     Route: 047
     Dates: start: 20090106, end: 20090106
  2. OPCON-A [Suspect]
     Indication: EYE PRURITUS
     Route: 047
     Dates: start: 20090106, end: 20090106

REACTIONS (2)
  - MYDRIASIS [None]
  - VISION BLURRED [None]
